FAERS Safety Report 9869837 (Version 1)
Quarter: 2014Q1

REPORT INFORMATION
  Report Type: Spontaneous
  Country: DE (occurrence: FR)
  Receive Date: 20140205
  Receipt Date: 20140205
  Transmission Date: 20141002
  Serious: Yes (Other)
  Sender: FDA-Public Use
  Company Number: FR-FRI-1000053381

PATIENT
  Age: 89 Year
  Sex: Female

DRUGS (6)
  1. MEMANTINE [Suspect]
     Dosage: 20 MG
     Route: 048
     Dates: end: 20130202
  2. AMOXICILLINE/ACIDE CLAVULANIQ. SANDOZ [Suspect]
     Dosage: 2 DF
     Route: 042
     Dates: start: 20130129, end: 20130204
  3. DOLIPRANEORO [Suspect]
     Dosage: 6 DF
     Dates: end: 20130201
  4. PHLOROGLUCINOL [Concomitant]
     Route: 048
  5. KARDEGIC [Concomitant]
     Dosage: 1 DF
     Route: 048
  6. TRANSIPEG [Concomitant]
     Dosage: 1 DF
     Route: 048

REACTIONS (3)
  - Hepatic enzyme increased [Recovered/Resolved]
  - Jaundice [Recovered/Resolved]
  - Hyperbilirubinaemia [Recovered/Resolved]
